FAERS Safety Report 11199518 (Version 3)
Quarter: 2016Q2

REPORT INFORMATION
  Report Type: Other
  Country: DE (occurrence: GB)
  Receive Date: 20150618
  Receipt Date: 20160516
  Transmission Date: 20160815
  Serious: Yes (Other)
  Sender: FDA-Public Use
  Company Number: DE-MYLANLABS-2015M1018806

PATIENT

DRUGS (2)
  1. OLANZAPINE. [Suspect]
     Active Substance: OLANZAPINE
     Indication: WEIGHT INCREASED
     Dosage: 20 MG, QD (START DATE : IN LAST YEAR)
     Route: 048
     Dates: start: 2014
  2. OLANZAPINE. [Suspect]
     Active Substance: OLANZAPINE
     Indication: SCHIZOPHRENIA
     Dosage: UNK

REACTIONS (4)
  - Drug administration error [Unknown]
  - Musculoskeletal stiffness [Unknown]
  - Schizophrenia [Unknown]
  - Drug ineffective [Unknown]
